FAERS Safety Report 5342289-0 (Version None)
Quarter: 2007Q2

REPORT INFORMATION
  Report Type: 
  Country: None (occurrence: None)
  Receive Date: 20070601
  Receipt Date: 20070522
  Transmission Date: 20071010
  Serious: Yes (Life-Threatening)
  Sender: FDA-Public Use
  Company Number: NL-JNJFOC-20070505613

PATIENT
  Age: 3 Year
  Sex: Female

DRUGS (2)
  1. PARACETAMOL [Suspect]
  2. PARACETAMOL [Suspect]
     Indication: DRUG USE FOR UNKNOWN INDICATION
     Dosage: 90 MG/KG/DAY OR MORE

REACTIONS (2)
  - ACCIDENTAL OVERDOSE [None]
  - ACUTE HEPATIC FAILURE [None]
